FAERS Safety Report 9981360 (Version 1)
Quarter: 2014Q1

REPORT INFORMATION
  Report Type: Spontaneous
  Country: GB (occurrence: GB)
  Receive Date: 20140307
  Receipt Date: 20140307
  Transmission Date: 20141002
  Serious: Yes (Congenital Anomaly, Other)
  Sender: FDA-Public Use
  Company Number: GB-TEVA-466525ISR

PATIENT
  Age: 1 Hour
  Sex: Male
  Weight: 3.99 kg

DRUGS (6)
  1. QUETIAPINE [Suspect]
     Route: 065
  2. ZOPICLONE [Suspect]
     Route: 065
  3. DULOXETINE HYDROCHLORIDE [Suspect]
     Dosage: 60 MG, QD
     Route: 065
  4. ZYPREXA [Suspect]
     Dosage: 10 MG, EACH EVENING
     Route: 064
     Dates: start: 20130425
  5. ZYPREXA [Suspect]
     Dosage: 15 MG, EACH EVENING
     Route: 064
     Dates: start: 20130531
  6. ARIPIPRAZOLE [Suspect]
     Route: 065
     Dates: start: 20121120, end: 20130103

REACTIONS (5)
  - Cleft palate [Unknown]
  - High arched palate [Unknown]
  - Feeding disorder neonatal [Recovered/Resolved]
  - Exposure during breast feeding [Unknown]
  - Foetal exposure during pregnancy [Unknown]
